FAERS Safety Report 10828689 (Version 3)
Quarter: 2016Q1

REPORT INFORMATION
  Report Type: Report from Study
  Country: PR (occurrence: PR)
  Receive Date: 20150219
  Receipt Date: 20160201
  Transmission Date: 20160525
  Serious: No
  Sender: FDA-Public Use
  Company Number: PR-ABBVIE-14P-131-1233033-00

PATIENT
  Age: 41 Year
  Sex: Female
  Weight: 71.28 kg

DRUGS (2)
  1. HUMIRA [Suspect]
     Active Substance: ADALIMUMAB
     Indication: FIBROMYALGIA
     Route: 058
     Dates: start: 2014, end: 201405
  2. HUMIRA [Suspect]
     Active Substance: ADALIMUMAB
     Indication: RHEUMATOID ARTHRITIS

REACTIONS (4)
  - Dermatitis allergic [Not Recovered/Not Resolved]
  - Pruritus [Recovered/Resolved]
  - Unevaluable event [Unknown]
  - Pruritus [Unknown]

NARRATIVE: CASE EVENT DATE: 20140416
